FAERS Safety Report 21156710 (Version 1)
Quarter: 2022Q3

REPORT INFORMATION
  Report Type: Spontaneous
  Country: IN (occurrence: IN)
  Receive Date: 20220801
  Receipt Date: 20220801
  Transmission Date: 20221026
  Serious: Yes (Other)
  Sender: FDA-Public Use
  Company Number: IN-PADAGIS-2022PAD00276

PATIENT

DRUGS (1)
  1. METRONIDAZOLE [Suspect]
     Active Substance: METRONIDAZOLE
     Indication: Amoebiasis
     Dosage: UNK
     Route: 065

REACTIONS (3)
  - Cytotoxic lesions of corpus callosum [None]
  - Toxic neuropathy [None]
  - Product use in unapproved indication [Unknown]
